FAERS Safety Report 5897016-5 (Version None)
Quarter: 2008Q3

REPORT INFORMATION
  Report Type: 
  Country: None (occurrence: None)
  Receive Date: 20080924
  Receipt Date: 20080402
  Transmission Date: 20090109
  Serious: Yes (Hospitalization, Other)
  Sender: FDA-Public Use
  Company Number: US-ASTRAZENECA-2008UW03250

PATIENT
  Age: 269 Month
  Sex: Male

DRUGS (17)
  1. SEROQUEL [Suspect]
     Route: 048
     Dates: start: 20070801
  2. LAMOTRIGINE [Concomitant]
     Dates: start: 20070201
  3. ARIPIPRAZOLE [Concomitant]
     Dates: start: 20070501
  4. ZIPRASIDONE HCL [Concomitant]
     Dates: start: 20070401
  5. DIPHENHYDRAMINE HCL [Concomitant]
     Indication: SLEEP DISORDER
  6. VALPROATE SODIUM [Concomitant]
     Dates: start: 20061001
  7. ZOLPIDEM [Concomitant]
  8. CLOZAPINE [Concomitant]
     Dates: start: 20070201
  9. CLONAZEPAM [Concomitant]
     Dates: start: 20070101
  10. CARBAMAZEPINE [Concomitant]
     Dates: start: 20070101
  11. OLANZAPINE [Concomitant]
     Indication: MANIA
     Route: 048
     Dates: start: 20030101
  12. OLANZAPINE [Concomitant]
     Route: 048
  13. OLANZAPINE [Concomitant]
     Route: 048
  14. OLANZAPINE [Concomitant]
     Dates: start: 20020101
  15. OLANZAPINE [Concomitant]
     Dosage: 25 MG
     Dates: start: 20071101
  16. CLONIDINE [Concomitant]
  17. TENEX [Concomitant]

REACTIONS (12)
  - ABDOMINAL DISTENSION [None]
  - ACTIVITIES OF DAILY LIVING IMPAIRED [None]
  - AMNESIA [None]
  - DRY MOUTH [None]
  - DYSPEPSIA [None]
  - GAIT DISTURBANCE [None]
  - INCONTINENCE [None]
  - MANIA [None]
  - RASH MACULAR [None]
  - SOMNOLENCE [None]
  - TREMOR [None]
  - WEIGHT INCREASED [None]
